FAERS Safety Report 5628920-0 (Version None)
Quarter: 2008Q1

REPORT INFORMATION
  Report Type: 
  Country: None (occurrence: None)
  Receive Date: 20080213
  Receipt Date: 20080204
  Transmission Date: 20080703
  Serious: Yes (Other)
  Sender: FDA-Public Use
  Company Number: 2007S1013667

PATIENT
  Age: 52 Year
  Sex: Male
  Weight: 63.5036 kg

DRUGS (7)
  1. PHENYTOIN SODIUM [Suspect]
     Indication: EPILEPSY
     Dosage: 500 MG; DAILY; ORAL; 400 MG; DAILY; ORAL; 200 MG; EVERY MORNING; ORAL; 100 MG; AT BEDTIME; ORAL
     Route: 048
     Dates: start: 19980101, end: 20071217
  2. PHENYTOIN SODIUM [Suspect]
     Indication: EPILEPSY
     Dosage: 500 MG; DAILY; ORAL; 400 MG; DAILY; ORAL; 200 MG; EVERY MORNING; ORAL; 100 MG; AT BEDTIME; ORAL
     Route: 048
     Dates: start: 20071217, end: 20080104
  3. PHENYTOIN SODIUM [Suspect]
     Indication: EPILEPSY
     Dosage: 500 MG; DAILY; ORAL; 400 MG; DAILY; ORAL; 200 MG; EVERY MORNING; ORAL; 100 MG; AT BEDTIME; ORAL
     Route: 048
     Dates: start: 20080104
  4. PHENYTOIN SODIUM [Suspect]
     Indication: EPILEPSY
     Dosage: 500 MG; DAILY; ORAL; 400 MG; DAILY; ORAL; 200 MG; EVERY MORNING; ORAL; 100 MG; AT BEDTIME; ORAL
     Route: 048
     Dates: start: 20080104
  5. VALSARTAN [Concomitant]
  6. ESTROGENS CONJUGATED [Concomitant]
  7. FEXOFENADINE [Concomitant]

REACTIONS (8)
  - BALANCE DISORDER [None]
  - DIZZINESS [None]
  - FATIGUE [None]
  - MALAISE [None]
  - MEMORY IMPAIRMENT [None]
  - NAUSEA [None]
  - VERTIGO [None]
  - VISION BLURRED [None]
